FAERS Safety Report 4836569-2 (Version None)
Quarter: 2005Q4

REPORT INFORMATION
  Report Type: 
  Country: None (occurrence: None)
  Receive Date: 20051121
  Receipt Date: 20051108
  Transmission Date: 20060501
  Serious: Yes (Other)
  Sender: FDA-Public Use
  Company Number: 2005152730

PATIENT
  Age: 64 Year
  Sex: Female
  Weight: 81.6475 kg

DRUGS (7)
  1. XALATAN [Suspect]
     Indication: GLAUCOMA
     Dosage: 3 MCG (1.5 MCG, EVERY NIGHT ), OPHTHALMIC
     Route: 047
     Dates: start: 20050101
  2. CLARITIN-D [Suspect]
     Indication: MULTIPLE ALLERGIES
     Dates: end: 20050101
  3. ALLEGRA-D 12 HOUR [Concomitant]
  4. EVISTA [Concomitant]
  5. ZYPREXA [Concomitant]
  6. LIPITOR [Concomitant]
  7. BENADRYL [Concomitant]

REACTIONS (5)
  - BLOOD CALCIUM DECREASED [None]
  - BLOOD MAGNESIUM DECREASED [None]
  - BLOOD POTASSIUM DECREASED [None]
  - FALL [None]
  - MUSCLE SPASMS [None]
